FAERS Safety Report 6948093-1 (Version None)
Quarter: 2010Q3

REPORT INFORMATION
  Report Type: 
  Country: None (occurrence: None)
  Receive Date: 20100828
  Receipt Date: 20091019
  Transmission Date: 20110219
  Serious: No
  Sender: FDA-Public Use
  Company Number: US-ABBOTT-09P-163-0603792-00

PATIENT
  Sex: Male
  Weight: 79.45 kg

DRUGS (3)
  1. NIASPAN [Suspect]
     Indication: HIGH DENSITY LIPOPROTEIN DECREASED
     Route: 048
     Dates: start: 20091014
  2. NIASPAN [Suspect]
     Indication: LOW DENSITY LIPOPROTEIN INCREASED
  3. WELCHOL [Concomitant]
     Indication: BLOOD CHOLESTEROL INCREASED
     Dosage: 3 IN AM AND 3 IN PM
     Route: 048

REACTIONS (1)
  - FLUSHING [None]
